FAERS Safety Report 11121125 (Version 2)
Quarter: 2015Q2

REPORT INFORMATION
  Report Type: Spontaneous
  Country: US (occurrence: US)
  Receive Date: 20150519
  Receipt Date: 20150625
  Transmission Date: 20150821
  Serious: Yes (Hospitalization, Other)
  Sender: FDA-Public Use
  Company Number: US-BAYER-2015-245245

PATIENT
  Age: 27 Year
  Sex: Female
  Weight: 53.52 kg

DRUGS (1)
  1. MIRENA [Suspect]
     Active Substance: LEVONORGESTREL
     Indication: CONTRACEPTION
     Dosage: 20 MCG/24HR, CONT
     Route: 015
     Dates: start: 20120921, end: 20130510

REACTIONS (9)
  - Uterine perforation [Not Recovered/Not Resolved]
  - Nightmare [None]
  - Injury [Not Recovered/Not Resolved]
  - Pain [Not Recovered/Not Resolved]
  - Depression suicidal [None]
  - Anxiety [None]
  - Pain in extremity [None]
  - Off label use of device [None]
  - Insomnia [None]

NARRATIVE: CASE EVENT DATE: 201304
